FAERS Safety Report 6446015-3 (Version None)
Quarter: 2009Q4

REPORT INFORMATION
  Report Type: 
  Country: None (occurrence: None)
  Receive Date: 20091119
  Receipt Date: 20090901
  Transmission Date: 20100525
  Serious: No
  Sender: FDA-Public Use
  Company Number: A0799490A

PATIENT
  Age: 70 Year
  Sex: Female
  Weight: 50 kg

DRUGS (2)
  1. WELLBUTRIN SR [Suspect]
     Indication: MAJOR DEPRESSION
     Route: 048
     Dates: start: 20090601, end: 20090701
  2. WELLBUTRIN [Suspect]
     Indication: MAJOR DEPRESSION
     Route: 048
     Dates: start: 20090601, end: 20090701

REACTIONS (2)
  - BLOOD PRESSURE INCREASED [None]
  - PANIC ATTACK [None]
